FAERS Safety Report 22322926 (Version 1)
Quarter: 2023Q2

REPORT INFORMATION
  Report Type: Spontaneous
  Country: CN (occurrence: CN)
  Receive Date: 20230516
  Receipt Date: 20230516
  Transmission Date: 20230721
  Serious: Yes (Disabling, Other)
  Sender: FDA-Public Use
  Company Number: CN-ABBVIE-4767519

PATIENT
  Age: 19 Year
  Sex: Male
  Weight: 69 kg

DRUGS (7)
  1. VENCLEXTA [Suspect]
     Active Substance: VENETOCLAX
     Indication: Acute leukaemia
     Dosage: DAY 1
     Route: 048
     Dates: start: 20230328, end: 20230328
  2. VENCLEXTA [Suspect]
     Active Substance: VENETOCLAX
     Indication: Acute leukaemia
     Dosage: DAY 2
     Route: 048
     Dates: start: 20230329, end: 20230329
  3. VENCLEXTA [Suspect]
     Active Substance: VENETOCLAX
     Indication: Acute leukaemia
     Dosage: DAY 3
     Route: 048
     Dates: start: 20230330, end: 20230330
  4. VENCLEXTA [Suspect]
     Active Substance: VENETOCLAX
     Indication: Acute leukaemia
     Dosage: DAY 4 TO DAY 10
     Route: 048
     Dates: start: 20230331, end: 20230406
  5. CYTARABINE [Suspect]
     Active Substance: CYTARABINE
     Indication: Acute leukaemia
     Dosage: 95 MILLIGRAM
     Route: 042
     Dates: start: 20230328, end: 20230401
  6. OMACETAXINE MEPESUCCINATE [Suspect]
     Active Substance: OMACETAXINE MEPESUCCINATE
     Indication: Acute leukaemia
     Dosage: 3.8 MILLIGRAM
     Route: 041
     Dates: start: 20230328, end: 20230401
  7. ACHROMYCIN [Suspect]
     Active Substance: TETRACYCLINE HYDROCHLORIDE
     Indication: Acute leukaemia
     Dosage: 20 MILLIGRAM
     Route: 042
     Dates: start: 20230328, end: 20230401

REACTIONS (1)
  - Myelosuppression [Recovering/Resolving]

NARRATIVE: CASE EVENT DATE: 20230413
